FAERS Safety Report 18452784 (Version 4)
Quarter: 2022Q2

REPORT INFORMATION
  Report Type: Spontaneous
  Country: AU (occurrence: AU)
  Receive Date: 20201102
  Receipt Date: 20220628
  Transmission Date: 20220721
  Serious: Yes (Other)
  Sender: FDA-Public Use
  Company Number: AU-GSKCCFAPAC-CASE-01066594_AE-35895

PATIENT

DRUGS (1)
  1. VENTOLIN [Suspect]
     Active Substance: ALBUTEROL SULFATE
     Indication: Asthma
     Dosage: UNK, 100MCG
     Route: 055

REACTIONS (5)
  - Near death experience [Unknown]
  - Life support [Unknown]
  - Dyspnoea [Unknown]
  - Drug ineffective [Unknown]
  - Product complaint [Unknown]
